FAERS Safety Report 9115369 (Version 1)
Quarter: 2013Q1

REPORT INFORMATION
  Report Type: Spontaneous
  Country: US (occurrence: None)
  Receive Date: 20130221
  Receipt Date: 20130221
  Transmission Date: 20140127
  Serious: Yes (Death)
  Sender: FDA-Public Use
  Company Number: None

PATIENT
  Age: 87 Year
  Sex: Male
  Weight: 104.7 kg

DRUGS (1)
  1. PRADAXA 150MG Q12HOURS BOEHRINGER-INGELHEIM PHARM [Suspect]
     Indication: ATRIAL FIBRILLATION
     Route: 048
     Dates: start: 20120320

REACTIONS (1)
  - Gastrointestinal haemorrhage [None]
